FAERS Safety Report 5514030-X (Version None)
Quarter: 2007Q4

REPORT INFORMATION
  Report Type: 
  Country: None (occurrence: None)
  Receive Date: 20071109
  Receipt Date: 20071109
  Transmission Date: 20080405
  Serious: Yes (Hospitalization)
  Sender: FDA-Public Use
  Company Number: None

PATIENT
  Age: 59 Year
  Sex: Female
  Weight: 65.5 kg

DRUGS (26)
  1. EZETIMIBE/SIMVASTATIN 10/80 MERCK/SCHERING-PLOUGH [Suspect]
     Indication: CORONARY ARTERY DISEASE
     Dosage: 10/80 DAILY PO
     Route: 048
  2. EZETIMIBE/SIMVASTATIN 10/80 MERCK/SCHERING-PLOUGH [Suspect]
     Indication: HYPERLIPIDAEMIA
     Dosage: 10/80 DAILY PO
     Route: 048
  3. PREDNISONE TAB [Suspect]
     Indication: IMMUNOSUPPRESSION
     Dosage: 7.5MG DAILY PO
     Route: 048
  4. INSULIN [Concomitant]
  5. CLONIDINE [Concomitant]
  6. ARTIFICIAL TEARS [Concomitant]
  7. OMEGA-3 FATTY ACID [Concomitant]
  8. GANCICLOVIR [Concomitant]
  9. TACROLIMUS [Concomitant]
  10. TORSEMIDE [Concomitant]
  11. MONTELUKAST SODIUM [Concomitant]
  12. AMLODIPINE [Concomitant]
  13. HYDROCODONE BITARTRATE AND ACETAMINOPHEN [Concomitant]
  14. MYCOPHENOLATE MOFETIL [Concomitant]
  15. FOLIC ACID [Concomitant]
  16. ERYTHROPOETIN [Concomitant]
  17. ASPIRIN [Concomitant]
  18. PYRIDOXINE [Concomitant]
  19. PREDNISONE TAB [Concomitant]
  20. PENTAMADINE [Concomitant]
  21. METOPROLOL TARTRATE [Concomitant]
  22. CALCIUM + VITAMIN D [Concomitant]
  23. NASONEX [Concomitant]
  24. CANDASARTAN [Concomitant]
  25. GABAPENTIN [Concomitant]
  26. MULTI-VITAMIN [Concomitant]

REACTIONS (5)
  - FALL [None]
  - HEAD INJURY [None]
  - MUSCLE TWITCHING [None]
  - MYOPATHY STEROID [None]
  - MYOSITIS [None]
